FAERS Safety Report 9331801 (Version 2)
Quarter: 2013Q2

REPORT INFORMATION
  Report Type: Spontaneous
  Country: US (occurrence: None)
  Receive Date: 20130603
  Receipt Date: 20130603
  Transmission Date: 20140414
  Serious: No
  Sender: FDA-Public Use
  Company Number: ALK-2013-001621

PATIENT
  Age: 44 Year
  Sex: Female
  Weight: 57.6 kg

DRUGS (6)
  1. VIVITROL (VIVITROL_NDA) INJECTION, 380MG [Suspect]
     Indication: DRUG DEPENDENCE
     Dosage: QMO,
     Route: 030
     Dates: start: 20130422
  2. IBUPROFEN (IBUPROFEN) [Concomitant]
  3. GABAPENTIN (GABAPENTIN) [Concomitant]
  4. REGLAN (METOCLOPRAMIDE) [Concomitant]
  5. ZANTAC (RANITIDINE HYDROCHLORIDE) [Concomitant]
  6. PROMETHAZINE (PROMETHAZINE) [Concomitant]

REACTIONS (5)
  - Injection site abscess [None]
  - Injection site reaction [None]
  - Injection site mass [None]
  - Injection site erythema [None]
  - Nausea [None]
